FAERS Safety Report 9638172 (Version 1)
Quarter: 2013Q4

REPORT INFORMATION
  Report Type: Spontaneous
  Country: US (occurrence: US)
  Receive Date: 20131022
  Receipt Date: 20131022
  Transmission Date: 20140711
  Serious: Yes (Other)
  Sender: FDA-Public Use
  Company Number: US-PFIZER INC-2013300463

PATIENT
  Age: 15 Year
  Sex: Female
  Weight: 58.96 kg

DRUGS (2)
  1. ADVIL [Suspect]
     Indication: PYREXIA
     Dosage: 400 MG, EVERY 4-6HOURS
     Dates: start: 20131014, end: 20131017
  2. ADVIL [Suspect]
     Indication: PAIN

REACTIONS (3)
  - Haematochezia [Not Recovered/Not Resolved]
  - Abdominal discomfort [Not Recovered/Not Resolved]
  - Abdominal pain lower [Not Recovered/Not Resolved]
